FAERS Safety Report 6282730-2 (Version None)
Quarter: 2009Q3

REPORT INFORMATION
  Report Type: 
  Country: None (occurrence: None)
  Receive Date: 20090724
  Receipt Date: 20090715
  Transmission Date: 20100115
  Serious: Yes (Hospitalization, Other)
  Sender: FDA-Public Use
  Company Number: PT-JNJFOC-20090706155

PATIENT
  Age: 37 Year
  Sex: Female

DRUGS (5)
  1. HALOPERIDOL DECANOATE [Suspect]
     Route: 065
  2. HALOPERIDOL DECANOATE [Suspect]
     Route: 065
  3. HALOPERIDOL DECANOATE [Suspect]
     Indication: SCHIZOPHRENIA
     Route: 065
  4. RISPERIDONE [Suspect]
     Indication: SCHIZOPHRENIA
     Route: 048
  5. LORAZEPAM [Concomitant]
     Indication: DRUG USE FOR UNKNOWN INDICATION

REACTIONS (7)
  - ANHEDONIA [None]
  - APATHY [None]
  - FATIGUE [None]
  - SCHIZOPHRENIA [None]
  - SOMNOLENCE [None]
  - TREATMENT NONCOMPLIANCE [None]
  - WEIGHT INCREASED [None]
